FAERS Safety Report 9015995 (Version 1)
Quarter: 2013Q1

REPORT INFORMATION
  Report Type: Spontaneous
  Country: US (occurrence: US)
  Receive Date: 20130116
  Receipt Date: 20130116
  Transmission Date: 20140127
  Serious: Yes (Other)
  Sender: FDA-Public Use
  Company Number: US-AMGEN-USASP2013002198

PATIENT
  Sex: Female
  Weight: 68.93 kg

DRUGS (8)
  1. ENBREL [Suspect]
     Indication: RHEUMATOID ARTHRITIS
     Dosage: 50 MG, QWK
     Route: 058
  2. PLAQUENIL                          /00072602/ [Concomitant]
     Dosage: 200 MG, UNK
  3. METHOTREXATE [Concomitant]
     Dosage: 2.5 MG, UNK
  4. FOLIC ACID [Concomitant]
     Dosage: 1 MG, UNK
  5. CALCIUM CITRATE [Concomitant]
     Dosage: 950 MG, UNK
  6. IRON [Concomitant]
     Dosage: 18 MG, UNK
  7. VITAMIN D /00107901/ [Concomitant]
     Dosage: 400 UNIT, UNK
  8. FIBER [Concomitant]
     Dosage: UNK

REACTIONS (2)
  - Heart rate increased [Unknown]
  - Dyspnoea [Unknown]
